FAERS Safety Report 9921641 (Version 1)
Quarter: 2014Q1

REPORT INFORMATION
  Report Type: Report from Study
  Country: US (occurrence: US)
  Receive Date: 20140225
  Receipt Date: 20140225
  Transmission Date: 20141002
  Serious: Yes (Other)
  Sender: FDA-Public Use
  Company Number: US-ASTRAZENECA-2014SE11533

PATIENT
  Age: 80 Year
  Sex: Female

DRUGS (4)
  1. ARIMIDEX [Suspect]
     Indication: BREAST CANCER FEMALE
     Route: 048
     Dates: start: 201304
  2. THYROID MEDICATION [Concomitant]
     Dosage: DOSE HAS CHANGED FIVE TIMES OVER A VERY SHORT PERIOD OF TIME
  3. EYE DROPS [Concomitant]
  4. OTHER MEDICATIONS [Concomitant]

REACTIONS (17)
  - Blindness [Unknown]
  - Movement disorder [Unknown]
  - Headache [Unknown]
  - Fatigue [Unknown]
  - Arthralgia [Unknown]
  - Gait disturbance [Unknown]
  - Screaming [Unknown]
  - Dizziness [Unknown]
  - Crying [Unknown]
  - Hearing impaired [Unknown]
  - Oropharyngeal pain [Unknown]
  - Secretion discharge [Unknown]
  - Infection [Unknown]
  - Dizziness [Unknown]
  - Thyroid disorder [Unknown]
  - Mental disorder due to a general medical condition [Unknown]
  - Fear [Unknown]
